FAERS Safety Report 7177106-X (Version None)
Quarter: 2010Q4

REPORT INFORMATION
  Report Type: 
  Country: None (occurrence: None)
  Receive Date: 20101220
  Receipt Date: 20101214
  Transmission Date: 20110411
  Serious: Yes (Death, Hospitalization, Other)
  Sender: FDA-Public Use
  Company Number: PHEH2006US08860

PATIENT
  Sex: Male
  Weight: 90.702 kg

DRUGS (17)
  1. AREDIA [Suspect]
     Indication: HYPERCALCAEMIA
     Dosage: 90 MG, ONCE/SINGLE
     Dates: start: 20030509, end: 20030509
  2. AREDIA [Suspect]
     Dosage: 90MG MONTHLY
     Dates: start: 20060412, end: 20060724
  3. ZOMETA [Suspect]
     Indication: HYPERCALCAEMIA
     Dosage: 4MG Q MONTH
     Dates: start: 20030609, end: 20031001
  4. ZOMETA [Suspect]
     Dosage: 4MG Q MONTH
     Dates: start: 20031202, end: 20051201
  5. ZOMETA [Suspect]
     Dosage: 3 MG Q MONTH
     Dates: start: 20060103, end: 20060301
  6. VELCADE [Concomitant]
     Indication: MULTIPLE MYELOMA
     Dosage: 2.4MG DAYS 1,4,8, AND 11 MONTHLY
     Dates: start: 20030728
  7. VELCADE [Concomitant]
     Dosage: 2.4MG DAYS 1,4,8, AND 11 MONTHLY
     Dates: start: 20050401
  8. ARANESP [Concomitant]
     Indication: ANAEMIA
     Dosage: 300MG DAY 1 SC
     Route: 058
     Dates: start: 20060426
  9. NEURONTIN [Concomitant]
     Indication: NEUROPATHY PERIPHERAL
     Dosage: 200 MG, QHS
  10. THALIDOMIDE [Concomitant]
     Indication: MULTIPLE MYELOMA
     Dosage: 50 MG 2-4 TABS
     Route: 048
     Dates: start: 20030530
  11. DECADRON #1 [Concomitant]
     Indication: MULTIPLE MYELOMA
     Dosage: X 4 DAYS
     Dates: start: 20030530
  12. LASIX [Concomitant]
     Dates: start: 20030101
  13. MAGNESIUM OXIDE [Concomitant]
  14. OXYCODONE HCL [Concomitant]
  15. NITROGLYCERIN ^A.L.^ [Concomitant]
  16. ATIVAN [Concomitant]
  17. COUMADIN [Concomitant]

REACTIONS (51)
  - ABDOMINAL PAIN [None]
  - ANGINA PECTORIS [None]
  - ANXIETY [None]
  - AORTIC ANEURYSM [None]
  - ARTERIOSCLEROSIS [None]
  - ARTHRALGIA [None]
  - BACK PAIN [None]
  - BLOOD CREATININE INCREASED [None]
  - BONE DISORDER [None]
  - CARDIAC FAILURE CONGESTIVE [None]
  - CATARACT [None]
  - CONSTIPATION [None]
  - DEATH [None]
  - DECUBITUS ULCER [None]
  - DIABETIC RETINOPATHY [None]
  - DIARRHOEA [None]
  - DIVERTICULUM [None]
  - DYSPHAGIA [None]
  - ENDOCARDITIS [None]
  - FATIGUE [None]
  - GINGIVAL INFECTION [None]
  - GINGIVAL PAIN [None]
  - HEADACHE [None]
  - HEARING IMPAIRED [None]
  - HYPERCALCAEMIA [None]
  - INJURY [None]
  - INTERVERTEBRAL DISC PROTRUSION [None]
  - INTESTINAL ISCHAEMIA [None]
  - JAW DISORDER [None]
  - MOUTH CYST [None]
  - MULTIPLE MYELOMA [None]
  - MUSCULAR WEAKNESS [None]
  - MYOCARDIAL ISCHAEMIA [None]
  - NOCTURIA [None]
  - OEDEMA PERIPHERAL [None]
  - ORAL CAVITY FISTULA [None]
  - ORAL DISCOMFORT [None]
  - OSTEONECROSIS OF JAW [None]
  - PAIN [None]
  - PERONEAL NERVE PALSY [None]
  - PNEUMONIA [None]
  - POSTERIOR CAPSULE OPACIFICATION [None]
  - PRESBYOPIA [None]
  - PRIMARY SEQUESTRUM [None]
  - PULMONARY HYPERTENSION [None]
  - PURULENCE [None]
  - SEPTIC EMBOLUS [None]
  - TOOTH EXTRACTION [None]
  - ULCER [None]
  - VITREOUS FLOATERS [None]
  - WEIGHT INCREASED [None]
